FAERS Safety Report 25723219 (Version 1)
Quarter: 2025Q3

REPORT INFORMATION
  Report Type: Spontaneous
  Country: US (occurrence: US)
  Receive Date: 20250825
  Receipt Date: 20250825
  Transmission Date: 20251021
  Serious: Yes (Hospitalization, Other)
  Sender: NOVO NORDISK
  Company Number: US-NOVOPROD-1501092

PATIENT
  Age: 48 Year
  Sex: Female
  Weight: 96.2 kg

DRUGS (3)
  1. SEMAGLUTIDE [Suspect]
     Active Substance: SEMAGLUTIDE
     Indication: Type 2 diabetes mellitus
     Dosage: 0.25 MG, QW
  2. SEMAGLUTIDE [Suspect]
     Active Substance: SEMAGLUTIDE
     Dosage: 1 MG, QW
  3. SEMAGLUTIDE [Suspect]
     Active Substance: SEMAGLUTIDE
     Dosage: 0.5 MG, QW

REACTIONS (4)
  - Hypokalaemia [Recovered/Resolved]
  - Hypophagia [Unknown]
  - Nausea [Unknown]
  - Vomiting [Unknown]
